FAERS Safety Report 12481624 (Version 2)
Quarter: 2016Q3

REPORT INFORMATION
  Report Type: Spontaneous
  Country: US (occurrence: US)
  Receive Date: 20160620
  Receipt Date: 20160809
  Transmission Date: 20161109
  Serious: Yes (Hospitalization, Disabling, Other)
  Sender: FDA-Public Use
  Company Number: US-PFIZER INC-2016301523

PATIENT
  Age: 78 Year
  Sex: Male

DRUGS (45)
  1. DEPO-TESTOSTERONE [Suspect]
     Active Substance: TESTOSTERONE CYPIONATE
     Dosage: 400 MG, MONTHLY (EVERY MONTH)
     Route: 030
     Dates: start: 20050323
  2. DEPO-TESTOSTERONE [Suspect]
     Active Substance: TESTOSTERONE CYPIONATE
     Dosage: 400 MG, MONTHLY (EVERY MONTH)
     Route: 030
     Dates: start: 20051214
  3. TESTOSTERONE CYPIONATE. [Suspect]
     Active Substance: TESTOSTERONE CYPIONATE
     Dosage: UNK
     Dates: start: 20001109, end: 20001208
  4. TESTOSTERONE CYPIONATE. [Suspect]
     Active Substance: TESTOSTERONE CYPIONATE
     Dosage: UNK
     Dates: start: 20011120, end: 20020319
  5. TESTOSTERONE CYPIONATE. [Suspect]
     Active Substance: TESTOSTERONE CYPIONATE
     Dosage: 400 MG, MONTHLY (EVERY MONTH)
     Route: 030
     Dates: start: 20090831
  6. DEPO-TESTOSTERONE [Suspect]
     Active Substance: TESTOSTERONE CYPIONATE
     Dosage: 400 MG, MONTHLY (EVERY MONTH)
     Route: 030
     Dates: start: 20000517
  7. DEPO-TESTOSTERONE [Suspect]
     Active Substance: TESTOSTERONE CYPIONATE
     Dosage: 400 MG, MONTHLY (EVERY MONTH)
     Route: 030
     Dates: start: 20011025
  8. DEPO-TESTOSTERONE [Suspect]
     Active Substance: TESTOSTERONE CYPIONATE
     Dosage: 400 MG, MONTHLY (EVERY MONTH)
     Route: 030
     Dates: start: 20050527
  9. DEPO-TESTOSTERONE [Suspect]
     Active Substance: TESTOSTERONE CYPIONATE
     Dosage: 400 MG, MONTHLY (EVERY MONTH)
     Route: 030
     Dates: start: 20060412
  10. TESTOSTERONE CYPIONATE. [Suspect]
     Active Substance: TESTOSTERONE CYPIONATE
     Dosage: UNK
     Dates: start: 19990723
  11. TESTOSTERONE CYPIONATE. [Suspect]
     Active Substance: TESTOSTERONE CYPIONATE
     Dosage: UNK
     Dates: start: 20050425
  12. TESTOSTERONE CYPIONATE. [Suspect]
     Active Substance: TESTOSTERONE CYPIONATE
     Dosage: UNK
     Dates: start: 20050909, end: 20051018
  13. DEPO-TESTOSTERONE [Suspect]
     Active Substance: TESTOSTERONE CYPIONATE
     Dosage: 400 MG, MONTHLY (EVERY MONTH)
     Route: 030
     Dates: start: 19990308
  14. DEPO-TESTOSTERONE [Suspect]
     Active Substance: TESTOSTERONE CYPIONATE
     Dosage: 400 MG, MONTHLY (EVERY MONTH)
     Route: 030
     Dates: start: 20031219
  15. DEPO-TESTOSTERONE [Suspect]
     Active Substance: TESTOSTERONE CYPIONATE
     Dosage: 400 MG, MONTHLY (EVERY MONTH)
     Route: 030
     Dates: start: 20040519
  16. DEPO-TESTOSTERONE [Suspect]
     Active Substance: TESTOSTERONE CYPIONATE
     Dosage: 400 MG, MONTHLY (EVERY MONTH)
     Route: 030
     Dates: start: 20050810
  17. TESTOSTERONE CYPIONATE. [Suspect]
     Active Substance: TESTOSTERONE CYPIONATE
     Dosage: UNK
     Dates: start: 19990323, end: 19990601
  18. TESTOSTERONE CYPIONATE. [Suspect]
     Active Substance: TESTOSTERONE CYPIONATE
     Dosage: UNK
     Dates: start: 19990908, end: 20000113
  19. TESTOSTERONE CYPIONATE. [Suspect]
     Active Substance: TESTOSTERONE CYPIONATE
     Dosage: UNK
     Dates: start: 20040106, end: 20040203
  20. DEPO-TESTOSTERONE [Suspect]
     Active Substance: TESTOSTERONE CYPIONATE
     Dosage: 400 MG, MONTHLY (EVERY MONTH)
     Route: 030
     Dates: start: 20000914
  21. DEPO-TESTOSTERONE [Suspect]
     Active Substance: TESTOSTERONE CYPIONATE
     Dosage: 400 MG, MONTHLY (EVERY MONTH)
     Route: 030
     Dates: start: 20041221
  22. TESTOSTERONE CYPIONATE. [Suspect]
     Active Substance: TESTOSTERONE CYPIONATE
     Dosage: UNK
     Dates: start: 20000612, end: 20000814
  23. TESTOSTERONE CYPIONATE. [Suspect]
     Active Substance: TESTOSTERONE CYPIONATE
     Dosage: UNK
     Dates: start: 20010215, end: 20010425
  24. TESTOSTERONE CYPIONATE. [Suspect]
     Active Substance: TESTOSTERONE CYPIONATE
     Dosage: UNK
     Dates: start: 20060104, end: 20060202
  25. TESTOSTERONE CYPIONATE. [Suspect]
     Active Substance: TESTOSTERONE CYPIONATE
     Dosage: 400 MG, MONTHLY (EVERY MONTH)
     Route: 030
     Dates: start: 20070912, end: 20080226
  26. DEPO-TESTOSTERONE [Suspect]
     Active Substance: TESTOSTERONE CYPIONATE
     Indication: HORMONE REPLACEMENT THERAPY
     Dosage: 400 MG, MONTHLY (EVERY MONTH)
     Route: 030
     Dates: start: 19981127
  27. DEPO-TESTOSTERONE [Suspect]
     Active Substance: TESTOSTERONE CYPIONATE
     Dosage: 400 MG, MONTHLY (EVERY MONTH)
     Route: 030
     Dates: start: 20040818
  28. TESTOSTERONE CYPIONATE. [Suspect]
     Active Substance: TESTOSTERONE CYPIONATE
     Dosage: UNK
     Dates: start: 20000310
  29. TESTOSTERONE CYPIONATE. [Suspect]
     Active Substance: TESTOSTERONE CYPIONATE
     Dosage: UNK
     Dates: start: 20030605, end: 20031110
  30. TESTOSTERONE CYPIONATE. [Suspect]
     Active Substance: TESTOSTERONE CYPIONATE
     Dosage: UNK
     Dates: start: 20040609, end: 20040716
  31. TESTOSTERONE CYPIONATE. [Suspect]
     Active Substance: TESTOSTERONE CYPIONATE
     Dosage: 400 MG, MONTHLY (EVERY MONTH)
     Route: 030
     Dates: start: 20080617, end: 20090729
  32. TESTOSTERONE CYPIONATE. [Suspect]
     Active Substance: TESTOSTERONE CYPIONATE
     Dosage: 400 MG, MONTHLY (EVERY MONTH)
     Route: 030
     Dates: start: 20091029, end: 20100222
  33. DEPO-TESTOSTERONE [Suspect]
     Active Substance: TESTOSTERONE CYPIONATE
     Dosage: 400 MG, MONTHLY (EVERY MONTH)
     Route: 030
     Dates: start: 19990630
  34. DEPO-TESTOSTERONE [Suspect]
     Active Substance: TESTOSTERONE CYPIONATE
     Dosage: 400 MG, MONTHLY (EVERY MONTH)
     Route: 030
     Dates: start: 19990818
  35. DEPO-TESTOSTERONE [Suspect]
     Active Substance: TESTOSTERONE CYPIONATE
     Dosage: 400 MG, MONTHLY (EVERY MONTH)
     Route: 030
     Dates: start: 20010112
  36. DEPO-TESTOSTERONE [Suspect]
     Active Substance: TESTOSTERONE CYPIONATE
     Dosage: 400 MG, MONTHLY (EVERY MONTH)
     Route: 030
     Dates: start: 20030314, end: 20030410
  37. DEPO-TESTOSTERONE [Suspect]
     Active Substance: TESTOSTERONE CYPIONATE
     Dosage: 400 MG, MONTHLY (EVERY MONTH)
     Route: 030
     Dates: start: 20060811, end: 20070509
  38. TESTOSTERONE CYPIONATE. [Suspect]
     Active Substance: TESTOSTERONE CYPIONATE
     Indication: HORMONE REPLACEMENT THERAPY
     Dosage: UNK
     Dates: start: 19990201
  39. TESTOSTERONE. [Suspect]
     Active Substance: TESTOSTERONE
     Indication: HORMONE REPLACEMENT THERAPY
     Dosage: 4 MG, UNK
     Route: 062
     Dates: start: 20000308, end: 20000509
  40. DEPO-TESTOSTERONE [Suspect]
     Active Substance: TESTOSTERONE CYPIONATE
     Dosage: 400 MG, MONTHLY (EVERY MONTH)
     Route: 030
     Dates: start: 20100503, end: 20121105
  41. TESTOSTERONE CYPIONATE. [Suspect]
     Active Substance: TESTOSTERONE CYPIONATE
     Dosage: UNK
     Dates: start: 20050613, end: 20050721
  42. TESTOSTERONE CYPIONATE. [Suspect]
     Active Substance: TESTOSTERONE CYPIONATE
     Dosage: UNK
     Dates: start: 20040914, end: 20041001
  43. TESTOSTERONE CYPIONATE. [Suspect]
     Active Substance: TESTOSTERONE CYPIONATE
     Dosage: UNK
     Dates: start: 20050113, end: 20050221
  44. TESTOSTERONE CYPIONATE. [Suspect]
     Active Substance: TESTOSTERONE CYPIONATE
     Dosage: UNK
     Dates: start: 20060427, end: 20060530
  45. TESTOSTERONE ENANTHATE. [Suspect]
     Active Substance: TESTOSTERONE ENANTHATE
     Indication: HORMONE REPLACEMENT THERAPY
     Dosage: UNK
     Dates: start: 20020626, end: 20030115

REACTIONS (4)
  - Cerebrovascular accident [Unknown]
  - Walking aid user [Not Recovered/Not Resolved]
  - Hemiparesis [Not Recovered/Not Resolved]
  - Mobility decreased [Not Recovered/Not Resolved]

NARRATIVE: CASE EVENT DATE: 20130729
